FAERS Safety Report 25475503 (Version 1)
Quarter: 2025Q2

REPORT INFORMATION
  Report Type: Report from Study
  Country: US (occurrence: US)
  Receive Date: 20250624
  Receipt Date: 20250624
  Transmission Date: 20250717
  Serious: Yes (Hospitalization)
  Sender: MALLINCKRODT
  Company Number: US-MALLINCKRODT-MNK202503689

PATIENT
  Sex: Male

DRUGS (3)
  1. CORTICOTROPIN [Suspect]
     Active Substance: CORTICOTROPIN
     Indication: Product used for unknown indication
  2. CORTICOTROPIN [Suspect]
     Active Substance: CORTICOTROPIN
  3. PREDNISONE [Concomitant]
     Active Substance: PREDNISONE

REACTIONS (4)
  - Hospitalisation [Unknown]
  - Injection site bruising [Unknown]
  - Headache [Recovered/Resolved]
  - Product dose omission issue [Unknown]
